FAERS Safety Report 5705930-6 (Version None)
Quarter: 2008Q2

REPORT INFORMATION
  Report Type: 
  Country: None (occurrence: None)
  Receive Date: 20080411
  Receipt Date: 20080407
  Transmission Date: 20081010
  Serious: Yes (Other)
  Sender: FDA-Public Use
  Company Number: 2008002260

PATIENT
  Age: 27 Year
  Sex: Female

DRUGS (1)
  1. PURELL (ETHYL ALCOHOL) [Suspect]
     Dosage: TOPICAL
     Route: 061
     Dates: start: 20080108, end: 20080108

REACTIONS (9)
  - APPLICATION SITE BURN [None]
  - BLISTER [None]
  - DERMATITIS CONTACT [None]
  - DRUG EXPOSURE VIA BREAST MILK [None]
  - ECZEMA [None]
  - ILL-DEFINED DISORDER [None]
  - NONSPECIFIC REACTION [None]
  - RASH PUSTULAR [None]
  - SKIN EXFOLIATION [None]
